FAERS Safety Report 7125790-9 (Version None)
Quarter: 2010Q4

REPORT INFORMATION
  Report Type: 
  Country: None (occurrence: None)
  Receive Date: 20101129
  Receipt Date: 20101116
  Transmission Date: 20110411
  Serious: Yes (Other)
  Sender: FDA-Public Use
  Company Number: B0686071A

PATIENT
  Age: 18 Year
  Sex: Male

DRUGS (1)
  1. CEFTAZIDIME [Suspect]
     Indication: BRONCHITIS
     Route: 042

REACTIONS (4)
  - DYSPNOEA [None]
  - HYPERSENSITIVITY [None]
  - PALLOR [None]
  - PRURITUS [None]
